FAERS Safety Report 8156169-9 (Version None)
Quarter: 2012Q1

REPORT INFORMATION
  Report Type: 
  Country: None (occurrence: None)
  Receive Date: 20120222
  Receipt Date: 20120213
  Transmission Date: 20120608
  Serious: Yes (Other)
  Sender: FDA-Public Use
  Company Number: US-JNJFOC-20110606470

PATIENT
  Sex: Male

DRUGS (2)
  1. PRECISE PAIN RELIEVING CREAM [Suspect]
     Indication: ARTHRALGIA
     Route: 061
     Dates: start: 20110527
  2. MAGNESIUM SULFATE [Suspect]
     Indication: ARTHRALGIA
     Route: 061
     Dates: start: 20110527

REACTIONS (2)
  - BURNS SECOND DEGREE [None]
  - APPLICATION SITE SCAR [None]
